FAERS Safety Report 25679317 (Version 1)
Quarter: 2025Q3

REPORT INFORMATION
  Report Type: Report from Study
  Country: US (occurrence: US)
  Receive Date: 20250814
  Receipt Date: 20250814
  Transmission Date: 20251020
  Serious: No
  Sender: SUNOVION
  Company Number: US-SUMITOMO PHARMA SWITZERLAND GMBH-2025SPA010209

PATIENT
  Age: 44 Year
  Sex: Male

DRUGS (7)
  1. ORGOVYX [Suspect]
     Active Substance: RELUGOLIX
     Indication: Prostate cancer
     Route: 048
  2. ORGOVYX [Suspect]
     Active Substance: RELUGOLIX
     Route: 048
  3. CREATINE [Concomitant]
     Active Substance: CREATINE
  4. ERLEADA [Concomitant]
     Active Substance: APALUTAMIDE
  5. LOSARTAN [Concomitant]
     Active Substance: LOSARTAN
  6. METHYLPHENIDATE [Concomitant]
     Active Substance: METHYLPHENIDATE
  7. PROPRANOLOL [Concomitant]
     Active Substance: PROPRANOLOL HYDROCHLORIDE

REACTIONS (4)
  - Pruritus [Unknown]
  - Temperature intolerance [Unknown]
  - Humidity intolerance [Unknown]
  - Rash [Unknown]
